FAERS Safety Report 17744731 (Version 3)
Quarter: 2020Q2

REPORT INFORMATION
  Report Type: Spontaneous
  Country: US (occurrence: US)
  Receive Date: 20200505
  Receipt Date: 20200515
  Transmission Date: 20200714
  Serious: No
  Sender: FDA-Public Use
  Company Number: US-PFIZER INC-2020177883

PATIENT
  Age: 79 Year
  Sex: Female
  Weight: 79.38 kg

DRUGS (3)
  1. PREGABALIN. [Suspect]
     Active Substance: PREGABALIN
     Indication: RADICULOPATHY
  2. PREGABALIN. [Suspect]
     Active Substance: PREGABALIN
     Indication: NEUROPATHY PERIPHERAL
     Dosage: 125 MG, DAILY (1 IN THE MORNING, 1 AT LUNCH, 1 FOR DINNER, AND 2 FOR BEDTIME)
     Dates: start: 202004
  3. PREGABALIN. [Suspect]
     Active Substance: PREGABALIN
     Indication: NEURALGIA
     Dosage: 150 UNK (2 IN THE MORNING, 1 AT LUNCH, AND 1 AT DINNER, AND 2 AT BEDTIME)

REACTIONS (6)
  - Nausea [Unknown]
  - Drug ineffective [Not Recovered/Not Resolved]
  - Dizziness [Unknown]
  - Disorientation [Unknown]
  - Adverse reaction [Not Recovered/Not Resolved]
  - Pain [Not Recovered/Not Resolved]

NARRATIVE: CASE EVENT DATE: 202004
